FAERS Safety Report 6181073-5 (Version None)
Quarter: 2009Q2

REPORT INFORMATION
  Report Type: 
  Country: None (occurrence: None)
  Receive Date: 20090501
  Receipt Date: 20090114
  Transmission Date: 20091009
  Serious: Yes (Other)
  Sender: FDA-Public Use
  Company Number: 000537

PATIENT

DRUGS (4)
  1. PARACETAMOL WITH CODEINE PHOSPHATE (CODEINE PHOSPHATE AND PARACETAMOL) [Suspect]
     Dosage: 8-10 TABLETS OF CODEINE 30 MG AND PARACTAMOL 500 MG IN COMBINATION DAILY (ORAL)
     Route: 048
  2. CELECOXIB [Concomitant]
  3. ALENDRONATE SODIUM [Concomitant]
  4. NITRAZEPAM [Concomitant]

REACTIONS (7)
  - ALANINE AMINOTRANSFERASE INCREASED [None]
  - ASPARTATE AMINOTRANSFERASE INCREASED [None]
  - BLOOD ALKALINE PHOSPHATASE INCREASED [None]
  - DEAFNESS NEUROSENSORY [None]
  - GAMMA-GLUTAMYLTRANSFERASE INCREASED [None]
  - MEAN CELL VOLUME INCREASED [None]
  - SUDDEN HEARING LOSS [None]
